FAERS Safety Report 11052356 (Version 1)
Quarter: 2015Q2

REPORT INFORMATION
  Report Type: Spontaneous
  Country: CA (occurrence: CA)
  Receive Date: 20150421
  Receipt Date: 20150421
  Transmission Date: 20150821
  Serious: Yes (Other)
  Sender: FDA-Public Use
  Company Number: CA-ASTELLAS-2015US012293

PATIENT
  Sex: Male

DRUGS (1)
  1. XTANDI [Suspect]
     Active Substance: ENZALUTAMIDE
     Indication: PROSTATE CANCER
     Dosage: 120 MG, FREQUENCY UNKNOWN
     Route: 048
     Dates: start: 20150408

REACTIONS (5)
  - Rash generalised [Unknown]
  - Blood pressure increased [Unknown]
  - Underdose [Unknown]
  - Fatigue [Unknown]
  - Insomnia [Unknown]
